FAERS Safety Report 7624927-2 (Version None)
Quarter: 2011Q3

REPORT INFORMATION
  Report Type: 
  Country: None (occurrence: None)
  Receive Date: 20110720
  Receipt Date: 20110711
  Transmission Date: 20111222
  Serious: Yes (Hospitalization, Other)
  Sender: FDA-Public Use
  Company Number: US-ASTRAZENECA-2011SE00621

PATIENT
  Age: 37 Year
  Sex: Female
  Weight: 77.1 kg

DRUGS (8)
  1. OTHER 22 MEDICATIONS [Concomitant]
  2. SEROQUEL [Suspect]
     Indication: BIPOLAR DISORDER
     Route: 048
     Dates: start: 20060101, end: 20100101
  3. SEROQUEL [Suspect]
     Indication: INSOMNIA
     Route: 048
     Dates: start: 20060101, end: 20100101
  4. SEROQUEL [Suspect]
     Route: 048
     Dates: start: 20100101, end: 20100101
  5. SEROQUEL [Suspect]
     Route: 048
  6. SEROQUEL [Suspect]
     Route: 048
  7. STEROIDS [Concomitant]
  8. SEROQUEL [Suspect]
     Route: 048
     Dates: start: 20100101, end: 20100101

REACTIONS (8)
  - INSOMNIA [None]
  - SYSTEMIC LUPUS ERYTHEMATOSUS [None]
  - MIGRAINE [None]
  - DRUG INEFFECTIVE FOR UNAPPROVED INDICATION [None]
  - PAIN [None]
  - VOMITING [None]
  - MALAISE [None]
  - WEIGHT INCREASED [None]
